FAERS Safety Report 26132222 (Version 1)
Quarter: 2025Q4

REPORT INFORMATION
  Report Type: Spontaneous
  Country: US (occurrence: None)
  Receive Date: 20251205
  Receipt Date: 20251205
  Transmission Date: 20260118
  Serious: Yes (Hospitalization)
  Sender: FDA-CTU
  Company Number: None

PATIENT
  Sex: Female

DRUGS (6)
  1. ICATIBANT ACETATE [Suspect]
     Active Substance: ICATIBANT ACETATE
     Indication: Complement deficiency disease
     Dosage: FREQUENCY : AS NEEDED;
     Route: 058
  2. DUPIXENT [Concomitant]
     Active Substance: DUPILUMAB
  3. SODIUM CHLORIDE [Concomitant]
     Active Substance: SODIUM CHLORIDE
  4. BERINERT KIT [Concomitant]
  5. HEPARIN L/L FLUSH SYR [Concomitant]
  6. SOD CHLOR POS STERILE F [Concomitant]

REACTIONS (1)
  - Hereditary angioedema [None]
